FAERS Safety Report 5467635-9 (Version None)
Quarter: 2007Q3

REPORT INFORMATION
  Report Type: 
  Country: None (occurrence: None)
  Receive Date: 20070921
  Receipt Date: 20070917
  Transmission Date: 20080115
  Serious: Yes (Death, Hospitalization)
  Sender: FDA-Public Use
  Company Number: 163-20785-07081140

PATIENT
  Age: 47 Year
  Sex: Male

DRUGS (5)
  1. THALOMID [Suspect]
     Indication: MULTIPLE MYELOMA
     Dosage: 100-200 MG, QD, ORAL
     Route: 048
     Dates: start: 20021024
  2. RENAGEL [Concomitant]
  3. COLACE (DOCUSATE SODIUM) [Concomitant]
  4. NEXIUM [Concomitant]
  5. ERYTHROPOIETIN (ERYTHPROPOIETIN) [Concomitant]

REACTIONS (2)
  - HAEMORRHAGE INTRACRANIAL [None]
  - THROMBOCYTOPENIA [None]
